FAERS Safety Report 6206973-9 (Version None)
Quarter: 2009Q2

REPORT INFORMATION
  Report Type: 
  Country: None (occurrence: None)
  Receive Date: 20090528
  Receipt Date: 20090521
  Transmission Date: 20091009
  Serious: Yes (Other)
  Sender: FDA-Public Use
  Company Number: B0575524A

PATIENT
  Age: 33 Year
  Sex: Female

DRUGS (1)
  1. VALTREX [Suspect]
     Indication: VARICELLA
     Dosage: 1000MG THREE TIMES PER DAY
     Route: 048
     Dates: start: 20090517, end: 20090521

REACTIONS (2)
  - ASTHENIA [None]
  - ERYTHEMA MULTIFORME [None]
